FAERS Safety Report 7211509-X (Version None)
Quarter: 2010Q4

REPORT INFORMATION
  Report Type: 
  Country: None (occurrence: None)
  Receive Date: 20101227
  Receipt Date: 20101214
  Transmission Date: 20110411
  Serious: Yes (Other)
  Sender: FDA-Public Use
  Company Number: 2010P1003392

PATIENT
  Age: 58 Year
  Sex: Female

DRUGS (2)
  1. CIPROFLOXACIN HCL [Suspect]
     Indication: BACTERIAL INFECTION
     Dosage: 500 MG;BID
     Dates: start: 19980101, end: 20071201
  2. CIPROFLOXACIN HCL [Suspect]
     Indication: CYSTITIS
     Dosage: 500 MG;BID
     Dates: start: 19980101, end: 20071201

REACTIONS (14)
  - ARTHROPATHY [None]
  - BACTERIAL INFECTION [None]
  - CHONDROPATHY [None]
  - CYSTITIS [None]
  - EMOTIONAL DISORDER [None]
  - FALL [None]
  - INSOMNIA [None]
  - JOINT INJURY [None]
  - MEMORY IMPAIRMENT [None]
  - MENTAL DISORDER [None]
  - MUSCLE ATROPHY [None]
  - MUSCLE DISORDER [None]
  - OSTEOARTHRITIS [None]
  - OSTEOPENIA [None]
